FAERS Safety Report 4426296-8 (Version None)
Quarter: 2004Q3

REPORT INFORMATION
  Report Type: 
  Country: None (occurrence: None)
  Receive Date: 20040811
  Receipt Date: 20040730
  Transmission Date: 20050211
  Serious: Yes (Disabling, Other)
  Sender: FDA-Public Use
  Company Number: K200401151

PATIENT
  Age: 24 Year
  Sex: Female
  Weight: 55 kg

DRUGS (1)
  1. NORDETTE-21 [Suspect]
     Indication: ORAL CONTRACEPTION
     Dosage: 1 TABLET, QD, ORAL
     Route: 048
     Dates: start: 19990101, end: 20040721

REACTIONS (5)
  - AMENORRHOEA [None]
  - BONE GIANT CELL TUMOUR BENIGN [None]
  - GOITRE [None]
  - HYPERTHYROIDISM [None]
  - OLIGOMENORRHOEA [None]
